FAERS Safety Report 12055705 (Version 1)
Quarter: 2016Q1

REPORT INFORMATION
  Report Type: Spontaneous
  Country: US (occurrence: US)
  Receive Date: 20160209
  Receipt Date: 20160209
  Transmission Date: 20160526
  Serious: Yes (Hospitalization)
  Sender: FDA-Public Use
  Company Number: US-ENDO PHARMACEUTICALS INC.-2016-001039

PATIENT
  Age: 60 Year
  Sex: Male
  Weight: 97.61 kg

DRUGS (3)
  1. XIAFLEX [Suspect]
     Active Substance: COLLAGENASE CLOSTRIDIUM HISTOLYTICUM
     Indication: PEYRONIE^S DISEASE
     Route: 026
     Dates: start: 20160201, end: 20160201
  2. XIAFLEX [Suspect]
     Active Substance: COLLAGENASE CLOSTRIDIUM HISTOLYTICUM
     Route: 026
     Dates: start: 201512
  3. XIAFLEX [Suspect]
     Active Substance: COLLAGENASE CLOSTRIDIUM HISTOLYTICUM
     Route: 026
     Dates: start: 20160129

REACTIONS (9)
  - Penile haemorrhage [Unknown]
  - Contusion [Not Recovered/Not Resolved]
  - Injection site swelling [Not Recovered/Not Resolved]
  - Injection site pain [Not Recovered/Not Resolved]
  - Testicular swelling [Not Recovered/Not Resolved]
  - Testicular pain [Not Recovered/Not Resolved]
  - Penile contusion [Not Recovered/Not Resolved]
  - Blood blister [Not Recovered/Not Resolved]
  - Penile swelling [Unknown]

NARRATIVE: CASE EVENT DATE: 20160201
